FAERS Safety Report 7241639-8 (Version None)
Quarter: 2011Q1

REPORT INFORMATION
  Report Type: 
  Country: None (occurrence: None)
  Receive Date: 20110124
  Receipt Date: 20110113
  Transmission Date: 20110831
  Serious: Yes (Hospitalization, Other)
  Sender: FDA-Public Use
  Company Number: JP-JNJFOC-20100908325

PATIENT
  Sex: Male
  Weight: 53 kg

DRUGS (3)
  1. REMICADE [Suspect]
     Dosage: 8 INFUSIONS
     Route: 042
  2. METHOTREXATE [Suspect]
     Indication: RHEUMATOID ARTHRITIS
     Route: 048
  3. REMICADE [Suspect]
     Indication: RHEUMATOID ARTHRITIS
     Dosage: INFUSION 1-8 ON UNSPECIFIED DATES
     Route: 042

REACTIONS (1)
  - PNEUMONIA [None]
